FAERS Safety Report 13371037 (Version 1)
Quarter: 2017Q1

REPORT INFORMATION
  Report Type: Report from Study
  Country: US (occurrence: US)
  Receive Date: 20170324
  Receipt Date: 20170324
  Transmission Date: 20170429
  Serious: Yes (Hospitalization, Other)
  Sender: FDA-Public Use
  Company Number: US-ELI_LILLY_AND_COMPANY-US201507003849

PATIENT
  Sex: Male

DRUGS (2)
  1. CYMBALTA [Suspect]
     Active Substance: DULOXETINE HYDROCHLORIDE
     Indication: ANXIETY
     Dosage: 60 MG, QD
     Route: 048
     Dates: start: 2010, end: 201504
  2. TEMAZEPAM. [Concomitant]
     Active Substance: TEMAZEPAM
     Dosage: UNK, UNKNOWN
     Route: 065

REACTIONS (22)
  - Drug withdrawal syndrome [Not Recovered/Not Resolved]
  - Irritability [Unknown]
  - Agitation [Unknown]
  - Eating disorder [Recovered/Resolved]
  - Pain [Not Recovered/Not Resolved]
  - Vomiting [Recovered/Resolved]
  - Drug ineffective [Unknown]
  - Diarrhoea [Not Recovered/Not Resolved]
  - Anal incontinence [Recovered/Resolved]
  - Drug dependence [Not Recovered/Not Resolved]
  - Insomnia [Recovered/Resolved]
  - Paraesthesia [Unknown]
  - Dizziness [Unknown]
  - Suicidal ideation [Unknown]
  - Chills [Not Recovered/Not Resolved]
  - Morbid thoughts [Not Recovered/Not Resolved]
  - Anxiety [Not Recovered/Not Resolved]
  - Hypertension [Unknown]
  - Chest pain [Not Recovered/Not Resolved]
  - Affect lability [Unknown]
  - Thinking abnormal [Not Recovered/Not Resolved]
  - Alcohol abuse [Recovered/Resolved]
